FAERS Safety Report 18432425 (Version 2)
Quarter: 2020Q4

REPORT INFORMATION
  Report Type: Report from Study
  Country: US (occurrence: US)
  Receive Date: 20201027
  Receipt Date: 20201124
  Transmission Date: 20210114
  Serious: Yes (Other)
  Sender: FDA-Public Use
  Company Number: US-INTERCEPT-CT2020002105

PATIENT
  Age: 65 Year
  Sex: Female
  Weight: 97 kg

DRUGS (28)
  1. PRAMIPEXOLE. [Concomitant]
     Active Substance: PRAMIPEXOLE
     Indication: PAIN
     Dosage: 0.5 MG, TID
     Route: 048
     Dates: start: 201808
  2. MELATONIN [Concomitant]
     Active Substance: MELATONIN
     Indication: INSOMNIA
     Dosage: 5 MG, QD
     Route: 048
     Dates: start: 2013
  3. METFORMIN [Concomitant]
     Active Substance: METFORMIN HYDROCHLORIDE
     Indication: TYPE 2 DIABETES MELLITUS
     Dosage: 500 MG, BID
     Route: 048
     Dates: start: 2006
  4. DERMOPLAST PAIN RELIEVING [Concomitant]
     Active Substance: BENZOCAINE\MENTHOL
     Indication: HERPES ZOSTER
     Dosage: 1 SPRAY, PRN
     Route: 061
     Dates: start: 20170217
  5. CLONAZEPAM. [Concomitant]
     Active Substance: CLONAZEPAM
     Indication: ANXIETY
     Dosage: 0.5 MG, BID PRN
     Route: 048
     Dates: start: 201503
  6. BENZOCAINE. [Concomitant]
     Active Substance: BENZOCAINE
     Indication: PAIN
     Dosage: 20 %, QD PRN
     Route: 061
     Dates: start: 201702
  7. LORATADINE. [Concomitant]
     Active Substance: LORATADINE
     Indication: EAR CONGESTION
     Dosage: 5 MG, PRN
     Route: 048
     Dates: start: 202004
  8. GABAPENTIN. [Concomitant]
     Active Substance: GABAPENTIN
     Indication: HYPOAESTHESIA
     Dosage: 600 MG, TID
     Route: 048
     Dates: start: 20180321
  9. DOCUSATE SODIUM. [Concomitant]
     Active Substance: DOCUSATE SODIUM
     Indication: CONSTIPATION
     Dosage: 100 MG, BID
     Route: 048
     Dates: start: 20180510
  10. ACETAMINOPHEN. [Concomitant]
     Active Substance: ACETAMINOPHEN
     Indication: PAIN
     Dosage: 325 MG, Q4HR PRN
     Route: 048
     Dates: start: 2005
  11. LIDOCAINE. [Concomitant]
     Active Substance: LIDOCAINE
     Indication: PAIN
     Dosage: 10 MG, QD
     Route: 062
     Dates: start: 2013
  12. LEVOTHYROXINE. [Concomitant]
     Active Substance: LEVOTHYROXINE
     Indication: HYPOTHYROIDISM
     Dosage: 50 MCG, QD
     Route: 048
     Dates: start: 2013
  13. TRULICITY [Concomitant]
     Active Substance: DULAGLUTIDE
     Indication: DIABETES MELLITUS INADEQUATE CONTROL
     Dosage: 0.75/0.5 MG/ML, QW
     Route: 058
     Dates: start: 201908
  14. DIVALPROEX [Concomitant]
     Active Substance: DIVALPROEX SODIUM
     Indication: HEADACHE
     Dosage: 500 MG, QID
     Route: 048
     Dates: start: 2006
  15. VITAMIN A + D [Concomitant]
     Indication: DRY SKIN
     Dosage: 1 APPLICATION, PRN
     Route: 061
     Dates: start: 20170217
  16. OBETICHOLIC ACID [Suspect]
     Active Substance: OBETICHOLIC ACID
     Indication: NON-ALCOHOLIC STEATOHEPATITIS
     Dosage: 10 MG, QD
     Route: 048
     Dates: start: 20170112
  17. OXYCODONE [Concomitant]
     Active Substance: OXYCODONE
     Indication: FALL
     Dosage: 5 MG, PRN
     Route: 048
     Dates: start: 201805
  18. MAGNESIUM [Concomitant]
     Active Substance: MAGNESIUM
     Indication: MUSCLE SPASMS
     Dosage: 250 MG, QD
     Route: 048
     Dates: start: 201902
  19. DULOXETINE. [Concomitant]
     Active Substance: DULOXETINE
     Indication: MAJOR DEPRESSION
     Dosage: 30 MG, QD
     Route: 048
     Dates: start: 20190801
  20. OMEPRAZOLE. [Concomitant]
     Active Substance: OMEPRAZOLE
     Indication: DYSPEPSIA
     Dosage: 20 MG, QD
     Route: 048
     Dates: start: 2014
  21. GEMFIBROZIL. [Concomitant]
     Active Substance: GEMFIBROZIL
     Indication: HYPERTRIGLYCERIDAEMIA
     Dosage: 600 MG, BID
     Route: 048
     Dates: start: 2006
  22. MONTELUKAST [Concomitant]
     Active Substance: MONTELUKAST SODIUM
     Indication: ASTHMA
     Dosage: 10 MG, QD
     Route: 048
     Dates: start: 2004
  23. NYSTATIN. [Concomitant]
     Active Substance: NYSTATIN
     Indication: FUNGAL INFECTION
     Dosage: 100000 IU, BID
     Route: 061
     Dates: start: 2006
  24. BUTALBITAL, ACETAMINOPHEN, AND CAFFEINE [Concomitant]
     Active Substance: ACETAMINOPHEN\BUTALBITAL\CAFFEINE
     Indication: HEADACHE
     Dosage: 50-325-40 MG, PRN
     Route: 048
     Dates: start: 2003
  25. FUROSEMIDE. [Concomitant]
     Active Substance: FUROSEMIDE
     Indication: TYPE 2 DIABETES MELLITUS
     Dosage: 20 MG, QD PRN
     Route: 048
     Dates: start: 20170209, end: 20200929
  26. ALBUTEROL. [Concomitant]
     Active Substance: ALBUTEROL
     Indication: ASTHMA
     Dosage: 90 MCG, PRN
     Route: 055
     Dates: start: 2014
  27. METHENAMINE [Concomitant]
     Active Substance: METHENAMINE
     Indication: URINARY TRACT INFECTION
     Dosage: 1 G, BID
     Route: 048
     Dates: start: 201706
  28. CITALOPRAM [Concomitant]
     Active Substance: CITALOPRAM HYDROBROMIDE
     Indication: ANXIETY
     Dosage: 10 MG, QD
     Route: 048
     Dates: start: 20151023

REACTIONS (1)
  - Cholelithiasis [Recovered/Resolved]

NARRATIVE: CASE EVENT DATE: 20200929
